FAERS Safety Report 5556258-9 (Version None)
Quarter: 2007Q4

REPORT INFORMATION
  Report Type: 
  Country: None (occurrence: None)
  Receive Date: 20071203
  Receipt Date: 20071123
  Transmission Date: 20080405
  Serious: Yes (Hospitalization)
  Sender: FDA-Public Use
  Company Number: 2007333264

PATIENT
  Age: 57 Year
  Sex: Female
  Weight: 110 kg

DRUGS (3)
  1. ROGAINE [Suspect]
     Indication: ALOPECIA EFFLUVIUM
     Dosage: 1 ML TWICE DAILY (1 ML, 2 IN 1 D), TOPICAL
     Route: 061
     Dates: start: 20070905, end: 20071007
  2. RAMIPRIL [Concomitant]
  3. BISOPROLOL FUMARATE [Concomitant]

REACTIONS (5)
  - APPLICATION SITE INFLAMMATION [None]
  - BLOOD PRESSURE FLUCTUATION [None]
  - BURNING SENSATION [None]
  - ECZEMA [None]
  - HYPERTENSIVE CRISIS [None]
